FAERS Safety Report 6140092-5 (Version None)
Quarter: 2009Q2

REPORT INFORMATION
  Report Type: 
  Country: None (occurrence: None)
  Receive Date: 20090401
  Receipt Date: 20090320
  Transmission Date: 20091009
  Serious: Yes (Hospitalization)
  Sender: FDA-Public Use
  Company Number: GR-GILEAD-E2B_00000317

PATIENT
  Age: 70 Year
  Sex: Female

DRUGS (1)
  1. AMBRISENTAN [Suspect]
     Indication: PULMONARY HYPERTENSION
     Dosage: 5MG PER DAY
     Route: 048
     Dates: start: 20090101, end: 20090101

REACTIONS (2)
  - OEDEMA PERIPHERAL [None]
  - SYNCOPE [None]
